FAERS Safety Report 8740615 (Version 2)
Quarter: 2012Q4

REPORT INFORMATION
  Report Type: 
  Country: US (occurrence: US)
  Receive Date: 20120823
  Receipt Date: 20120928
  Transmission Date: 20130627
  Serious: No
  Sender: FDA-Public Use
  Company Number: US-PFIZER INC-2012203957

PATIENT
  Sex: Male

DRUGS (3)
  1. ZITHROMAX [Suspect]
     Dosage: UNK
  2. AZITHROMYCIN [Suspect]
     Dosage: 250 mg, UNK (tablets)
  3. BROMPHENIRAMINE [Suspect]
     Dosage: UNK

REACTIONS (1)
  - Migraine [Unknown]
